FAERS Safety Report 11767999 (Version 1)
Quarter: 2015Q4

REPORT INFORMATION
  Report Type: Spontaneous
  Country: US (occurrence: US)
  Receive Date: 20151123
  Receipt Date: 20151123
  Transmission Date: 20160304
  Serious: No
  Sender: FDA-Public Use
  Company Number: US-JNJFOC-20151100694

PATIENT
  Sex: Female

DRUGS (1)
  1. INVEGA SUSTENNA [Suspect]
     Active Substance: PALIPERIDONE PALMITATE
     Indication: DEMENTIA
     Route: 030

REACTIONS (8)
  - Anger [Unknown]
  - Mineral deficiency [Unknown]
  - Asthenia [Unknown]
  - Pressure of speech [Unknown]
  - Emotional distress [Unknown]
  - Speech disorder [Unknown]
  - Logorrhoea [Unknown]
  - Bone disorder [Unknown]
